FAERS Safety Report 9862111 (Version 1)
Quarter: 2014Q1

REPORT INFORMATION
  Report Type: Spontaneous
  Country: JP (occurrence: JP)
  Receive Date: 20140203
  Receipt Date: 20140203
  Transmission Date: 20141002
  Serious: Yes (Other)
  Sender: FDA-Public Use
  Company Number: JP-TEVA-460319ISR

PATIENT
  Age: 16 Day
  Sex: Male

DRUGS (1)
  1. ALPROSTADIL [Suspect]
     Dosage: 3NG/KG/MIN; CONTINUOUS INFUSION
     Route: 050

REACTIONS (1)
  - Vascular dissection [Recovered/Resolved with Sequelae]
